FAERS Safety Report 23626529 (Version 2)
Quarter: 2024Q1

REPORT INFORMATION
  Report Type: Report from Study
  Country: IE (occurrence: IE)
  Receive Date: 20240313
  Receipt Date: 20240314
  Transmission Date: 20240410
  Serious: Yes (Disabling)
  Sender: FDA-Public Use
  Company Number: IE-PFIZER INC-2008155986

PATIENT
  Age: 12 Year
  Sex: Male

DRUGS (4)
  1. METHYLPREDNISOLONE SODIUM SUCCINATE [Suspect]
     Active Substance: METHYLPREDNISOLONE SODIUM SUCCINATE
     Indication: Scleroderma
     Dosage: 30 MG/KG, DAILY FOR 3 DAYS FOR 3 MONTHLY CYCLES
  2. METHOTREXATE SODIUM [Suspect]
     Active Substance: METHOTREXATE SODIUM
     Indication: Scleroderma
     Dosage: 0.3 MG/KG, WEEKLY
  3. PENICILLAMINE [Suspect]
     Active Substance: PENICILLAMINE
     Indication: Scleroderma
     Dosage: UNK
  4. FOLIC ACID [Concomitant]
     Active Substance: FOLIC ACID
     Dosage: UNK

REACTIONS (1)
  - Growth retardation [Unknown]
